FAERS Safety Report 18603174 (Version 1)
Quarter: 2020Q4

REPORT INFORMATION
  Report Type: Spontaneous
  Country: US (occurrence: US)
  Receive Date: 20201210
  Receipt Date: 20201210
  Transmission Date: 20210114
  Serious: Yes (Other)
  Sender: FDA-Public Use
  Company Number: US-PURDUE PHARMA-USA-2020-0151163

PATIENT
  Sex: Female

DRUGS (4)
  1. HYDROMORPHONE TABLET (RHODES) [Suspect]
     Active Substance: HYDROMORPHONE
     Indication: NEPHROLITHIASIS
     Dosage: UNK
     Route: 048
  2. HYDROCODONE BITARTRATE/ACETAMINOPHEN [Suspect]
     Active Substance: ACETAMINOPHEN\HYDROCODONE BITARTRATE
     Indication: NEPHROLITHIASIS
     Dosage: UNK
     Route: 048
  3. BUPRENORPHINE TRANSDERMAL PATCH (SIMILAR TO NDA 21-306) [Suspect]
     Active Substance: BUPRENORPHINE
     Indication: NEPHROLITHIASIS
     Dosage: UNK
     Route: 062
  4. TRAMADOL. [Suspect]
     Active Substance: TRAMADOL
     Indication: NEPHROLITHIASIS
     Dosage: UNK
     Route: 065

REACTIONS (1)
  - Drug dependence [Unknown]
